FAERS Safety Report 5651786-X (Version None)
Quarter: 2008Q1

REPORT INFORMATION
  Report Type: 
  Country: None (occurrence: None)
  Receive Date: 20080305
  Receipt Date: 20071207
  Transmission Date: 20080703
  Serious: Yes (Other)
  Sender: FDA-Public Use
  Company Number: GB-PFIZER INC-2008017726

PATIENT
  Sex: Female

DRUGS (2)
  1. DELTACORTRIL [Suspect]
     Indication: ASTHMA
     Route: 048
  2. DELTACORTRIL [Suspect]
     Route: 048

REACTIONS (2)
  - HYPERSENSITIVITY [None]
  - SWELLING FACE [None]
